FAERS Safety Report 8496630-0 (Version None)
Quarter: 2012Q2

REPORT INFORMATION
  Report Type: 
  Country: None (occurrence: None)
  Receive Date: 20120629
  Receipt Date: 20120618
  Transmission Date: 20120825
  Serious: Yes (Other)
  Sender: FDA-Public Use
  Company Number: JP-2012-15565

PATIENT
  Age: 62 Year
  Sex: Male

DRUGS (3)
  1. PLETAL [Suspect]
     Indication: TRANSIENT ISCHAEMIC ATTACK
     Dosage: ORAL
     Route: 048
  2. ANTIHYPERTENSIVES (ANTIHYPERTENSIVES) [Concomitant]
  3. CLOPIDOGREL BISULFATE [Concomitant]

REACTIONS (4)
  - CEREBRAL HAEMORRHAGE [None]
  - APHASIA [None]
  - HEMIPLEGIA [None]
  - SUBARACHNOID HAEMORRHAGE [None]
